FAERS Safety Report 16558530 (Version 1)
Quarter: 2019Q3

REPORT INFORMATION
  Report Type: Spontaneous
  Country: NZ (occurrence: NZ)
  Receive Date: 20190711
  Receipt Date: 20190711
  Transmission Date: 20191004
  Serious: Yes (Hospitalization)
  Sender: FDA-Public Use
  Company Number: NZ-TEVA-2019-NZ-1073577

PATIENT
  Age: 50 Year
  Sex: Male

DRUGS (1)
  1. TOPIRAMATE. [Suspect]
     Active Substance: TOPIRAMATE
     Indication: WEIGHT DECREASED
     Dosage: SINGLE DOSE
     Route: 065

REACTIONS (6)
  - Myopia [Recovered/Resolved]
  - Off label use [Unknown]
  - Iris atrophy [Unknown]
  - Choroidal effusion [Unknown]
  - Pupillary deformity [Not Recovered/Not Resolved]
  - Angle closure glaucoma [Recovered/Resolved]
